FAERS Safety Report 6663041-X (Version None)
Quarter: 2010Q2

REPORT INFORMATION
  Report Type: 
  Country: None (occurrence: None)
  Receive Date: 20100401
  Receipt Date: 20100324
  Transmission Date: 20101027
  Serious: Yes (Hospitalization, Other)
  Sender: FDA-Public Use
  Company Number: US-ELI_LILLY_AND_COMPANY-US201003006541

PATIENT
  Sex: Female
  Weight: 99.773 kg

DRUGS (10)
  1. BYETTA [Suspect]
     Indication: TYPE 2 DIABETES MELLITUS
     Dosage: 5 UG, 2/D
     Route: 058
  2. BYETTA [Suspect]
     Dosage: 10 UG, 2/D
     Route: 058
  3. NOVOLOG MIX 70/30 [Concomitant]
  4. LIPITOR [Concomitant]
  5. ATACAND [Concomitant]
  6. ASPIRIN CHILDREN [Concomitant]
  7. NIASPAN [Concomitant]
  8. NEURONTIN [Concomitant]
  9. CARVEDILOL [Concomitant]
  10. LOVAZA [Concomitant]
     Dates: end: 20100324

REACTIONS (8)
  - BLOOD GLUCOSE DECREASED [None]
  - CARDIAC FAILURE CONGESTIVE [None]
  - CARDIAC VALVE DISEASE [None]
  - DAWN PHENOMENON [None]
  - DYSPNOEA [None]
  - MYOCARDIAL INFARCTION [None]
  - NAUSEA [None]
  - OFF LABEL USE [None]
